FAERS Safety Report 5428573-0 (Version None)
Quarter: 2007Q3

REPORT INFORMATION
  Report Type: 
  Country: None (occurrence: None)
  Receive Date: 20070824
  Receipt Date: 20060523
  Transmission Date: 20080115
  Serious: Yes (Other)
  Sender: FDA-Public Use
  Company Number: USBAX-L-20070030

PATIENT
  Sex: Female

DRUGS (1)
  1. NAVELBINE [Suspect]
     Indication: CERVIX CARCINOMA RECURRENT
     Dosage: 30 MG/M2 IV
     Route: 042

REACTIONS (1)
  - PAIN [None]
